FAERS Safety Report 5969129-0 (Version None)
Quarter: 2008Q4

REPORT INFORMATION
  Report Type: 
  Country: None (occurrence: None)
  Receive Date: 20081126
  Receipt Date: 20081113
  Transmission Date: 20090506
  Serious: Yes (Hospitalization, Disabling)
  Sender: FDA-Public Use
  Company Number: DE-GENENTECH-268237

PATIENT
  Age: 82 Year
  Sex: Female

DRUGS (6)
  1. RANIBIZUMAB [Suspect]
     Indication: MACULAR DEGENERATION
     Dosage: UNK
     Route: 031
     Dates: start: 20080623
  2. PLAVIX [Concomitant]
     Indication: DRUG USE FOR UNKNOWN INDICATION
  3. AZOPT [Concomitant]
     Indication: DRUG USE FOR UNKNOWN INDICATION
  4. XALACOM [Concomitant]
     Indication: DRUG USE FOR UNKNOWN INDICATION
  5. SORTIS [Concomitant]
     Indication: DRUG USE FOR UNKNOWN INDICATION
  6. MEMANTINE HCL [Concomitant]
     Indication: DRUG USE FOR UNKNOWN INDICATION

REACTIONS (3)
  - CEREBROVASCULAR ACCIDENT [None]
  - OPTIC ATROPHY [None]
  - VISUAL ACUITY REDUCED [None]
